FAERS Safety Report 14410612 (Version 1)
Quarter: 2018Q1

REPORT INFORMATION
  Report Type: Spontaneous
  Country: US (occurrence: US)
  Receive Date: 20180119
  Receipt Date: 20180119
  Transmission Date: 20180509
  Serious: Yes (Other)
  Sender: FDA-Public Use
  Company Number: US-009507513-1801USA004373

PATIENT
  Age: 36 Year
  Sex: Female
  Weight: 85.71 kg

DRUGS (2)
  1. VITAMINS (UNSPECIFIED) [Concomitant]
     Active Substance: VITAMINS
     Dosage: UNK
  2. NEXPLANON [Suspect]
     Active Substance: ETONOGESTREL
     Indication: MENSTRUAL CYCLE MANAGEMENT
     Dosage: 1 IMPLANT FOR 3 YEARS
     Route: 059
     Dates: start: 20171004, end: 201711

REACTIONS (6)
  - Rash [Unknown]
  - Metrorrhagia [Unknown]
  - Depression [Unknown]
  - Anxiety [Unknown]
  - Suicidal ideation [Unknown]
  - Fatigue [Unknown]

NARRATIVE: CASE EVENT DATE: 20171004
